FAERS Safety Report 12688274 (Version 4)
Quarter: 2017Q1

REPORT INFORMATION
  Report Type: Spontaneous
  Country: CA (occurrence: CA)
  Receive Date: 20160826
  Receipt Date: 20170208
  Transmission Date: 20170428
  Serious: Yes (Other)
  Sender: FDA-Public Use
  Company Number: CA-ROCHE-1817368

PATIENT
  Age: 56 Year
  Sex: Female

DRUGS (48)
  1. XOLAIR [Suspect]
     Active Substance: OMALIZUMAB
     Route: 058
     Dates: start: 20120507
  2. XOLAIR [Suspect]
     Active Substance: OMALIZUMAB
     Dosage: UNK
     Route: 058
     Dates: start: 20140303
  3. XOLAIR [Suspect]
     Active Substance: OMALIZUMAB
     Dosage: 375 MG, BIW
     Route: 058
  4. XOLAIR [Suspect]
     Active Substance: OMALIZUMAB
     Dosage: UNK
     Route: 058
     Dates: start: 20140203
  5. XOLAIR [Suspect]
     Active Substance: OMALIZUMAB
     Dosage: UNK
     Route: 058
     Dates: start: 20141014
  6. XOLAIR [Suspect]
     Active Substance: OMALIZUMAB
     Dosage: UNK
     Route: 058
  7. XOLAIR [Suspect]
     Active Substance: OMALIZUMAB
     Dosage: UNK
     Route: 058
     Dates: start: 20151221
  8. XOLAIR [Suspect]
     Active Substance: OMALIZUMAB
     Dosage: UNK
     Route: 058
     Dates: start: 20160718
  9. XOLAIR [Suspect]
     Active Substance: OMALIZUMAB
     Dosage: UNK
     Route: 058
     Dates: start: 20160802
  10. XOLAIR [Suspect]
     Active Substance: OMALIZUMAB
     Dosage: 375 MG, BIW
     Route: 058
     Dates: start: 20111107
  11. XOLAIR [Suspect]
     Active Substance: OMALIZUMAB
     Dosage: UNK
     Route: 058
     Dates: start: 20111219
  12. XOLAIR [Suspect]
     Active Substance: OMALIZUMAB
     Dosage: UNK
     Route: 058
     Dates: start: 20120103
  13. XOLAIR [Suspect]
     Active Substance: OMALIZUMAB
     Dosage: UNK
     Route: 058
     Dates: start: 20120326
  14. XOLAIR [Suspect]
     Active Substance: OMALIZUMAB
     Dosage: UNK
     Route: 058
     Dates: start: 20160314
  15. ADVAIR HFA [Concomitant]
     Active Substance: FLUTICASONE PROPIONATE\SALMETEROL XINAFOATE
     Indication: PRODUCT USED FOR UNKNOWN INDICATION
     Dosage: UNK
     Route: 065
  16. XOLAIR [Suspect]
     Active Substance: OMALIZUMAB
     Dosage: UNK
     Route: 058
     Dates: start: 20130918
  17. XOLAIR [Suspect]
     Active Substance: OMALIZUMAB
     Route: 058
     Dates: start: 20140120
  18. XOLAIR [Suspect]
     Active Substance: OMALIZUMAB
     Dosage: UNK
     Route: 058
     Dates: start: 20140218
  19. XOLAIR [Suspect]
     Active Substance: OMALIZUMAB
     Dosage: UNK
     Route: 058
     Dates: start: 20140414
  20. XOLAIR [Suspect]
     Active Substance: OMALIZUMAB
     Dosage: UNK
     Route: 058
     Dates: start: 20150202
  21. XOLAIR [Suspect]
     Active Substance: OMALIZUMAB
     Dosage: UNK
     Route: 058
  22. XOLAIR [Suspect]
     Active Substance: OMALIZUMAB
     Dosage: 375 MG, BIW
     Route: 058
     Dates: start: 20160104
  23. XOLAIR [Suspect]
     Active Substance: OMALIZUMAB
     Route: 058
     Dates: start: 20160815
  24. VENTOLIN [Concomitant]
     Active Substance: ALBUTEROL SULFATE
     Indication: PRODUCT USED FOR UNKNOWN INDICATION
     Route: 065
  25. XOLAIR [Suspect]
     Active Substance: OMALIZUMAB
     Indication: RHINITIS ALLERGIC
     Dosage: 375 MG, BIW
     Route: 058
     Dates: start: 20111025
  26. XOLAIR [Suspect]
     Active Substance: OMALIZUMAB
     Dosage: 375 MG, BIW
     Route: 058
     Dates: start: 20111205
  27. XOLAIR [Suspect]
     Active Substance: OMALIZUMAB
     Dosage: UNK
     Route: 058
     Dates: start: 20130903
  28. XOLAIR [Suspect]
     Active Substance: OMALIZUMAB
     Dosage: UNK
     Route: 058
     Dates: start: 20141125
  29. XOLAIR [Suspect]
     Active Substance: OMALIZUMAB
     Dosage: UNK
     Route: 058
     Dates: start: 20150219
  30. XOLAIR [Suspect]
     Active Substance: OMALIZUMAB
     Dosage: UNK
     Route: 058
     Dates: start: 20150401
  31. XOLAIR [Suspect]
     Active Substance: OMALIZUMAB
     Route: 058
     Dates: start: 20120424
  32. XOLAIR [Suspect]
     Active Substance: OMALIZUMAB
     Route: 058
     Dates: start: 20131223
  33. XOLAIR [Suspect]
     Active Substance: OMALIZUMAB
     Dosage: UNK
     Route: 058
     Dates: start: 20140526
  34. XOLAIR [Suspect]
     Active Substance: OMALIZUMAB
     Dosage: UNK
     Route: 058
     Dates: start: 20140805
  35. XOLAIR [Suspect]
     Active Substance: OMALIZUMAB
     Dosage: UNK
     Route: 058
     Dates: start: 20141110
  36. XOLAIR [Suspect]
     Active Substance: OMALIZUMAB
     Dosage: UNK
     Route: 058
     Dates: start: 20150720
  37. XOLAIR [Suspect]
     Active Substance: OMALIZUMAB
     Dosage: UNK
     Route: 058
     Dates: start: 20150817
  38. XOLAIR [Suspect]
     Active Substance: OMALIZUMAB
     Route: 058
     Dates: start: 20131125
  39. XOLAIR [Suspect]
     Active Substance: OMALIZUMAB
     Dosage: UNK
     Route: 058
     Dates: start: 20140331
  40. XOLAIR [Suspect]
     Active Substance: OMALIZUMAB
     Dosage: UNK
     Route: 058
     Dates: start: 20140929
  41. XOLAIR [Suspect]
     Active Substance: OMALIZUMAB
     Dosage: UNK
     Route: 058
     Dates: start: 20160218
  42. XOLAIR [Suspect]
     Active Substance: OMALIZUMAB
     Dosage: UNK
     Route: 058
     Dates: start: 20160229
  43. SALBUTAMOL [Concomitant]
     Active Substance: ALBUTEROL
     Indication: PRODUCT USED FOR UNKNOWN INDICATION
     Dosage: UNK
     Route: 065
  44. XOLAIR [Suspect]
     Active Substance: OMALIZUMAB
     Indication: ASTHMA
     Route: 058
     Dates: start: 20111007
  45. XOLAIR [Suspect]
     Active Substance: OMALIZUMAB
     Route: 058
     Dates: start: 20161024
  46. XOLAIR [Suspect]
     Active Substance: OMALIZUMAB
     Route: 058
     Dates: start: 20170116
  47. AMOXICILLIN/CLAVULANIC ACID [Concomitant]
     Active Substance: AMOXICILLIN\CLAVULANIC ACID
     Indication: PRODUCT USED FOR UNKNOWN INDICATION
     Dosage: UNK
     Route: 065
  48. INFLUENZA VACCINE [Concomitant]
     Active Substance: INFLUENZA VIRUS VACCINE
     Indication: PRODUCT USED FOR UNKNOWN INDICATION
     Dosage: UNK
     Route: 065
     Dates: start: 20111117

REACTIONS (49)
  - Rales [Unknown]
  - Gastroenteritis [Recovering/Resolving]
  - Nasal congestion [Unknown]
  - Nausea [Recovered/Resolved]
  - Dizziness [Recovered/Resolved]
  - Weight decreased [Unknown]
  - Contusion [Unknown]
  - Cough [Not Recovered/Not Resolved]
  - Influenza [Not Recovered/Not Resolved]
  - Urticaria [Recovered/Resolved]
  - Musculoskeletal stiffness [Unknown]
  - Pharyngeal oedema [Unknown]
  - Blood pressure increased [Not Recovered/Not Resolved]
  - Rash [Recovered/Resolved]
  - Pruritus [Recovered/Resolved]
  - Influenza like illness [Unknown]
  - Injection site warmth [Unknown]
  - Sinus congestion [Not Recovered/Not Resolved]
  - Weight increased [Unknown]
  - Lower respiratory tract infection [Recovering/Resolving]
  - Chest pain [Unknown]
  - Pain in extremity [Unknown]
  - Abdominal pain upper [Recovered/Resolved]
  - Paranasal sinus hypersecretion [Unknown]
  - Rhinorrhoea [Unknown]
  - Body temperature decreased [Unknown]
  - Fatigue [Unknown]
  - Rash generalised [Recovered/Resolved]
  - Injection site pain [Recovered/Resolved]
  - Palpitations [Unknown]
  - Injection site rash [Unknown]
  - Hypoventilation [Unknown]
  - Chest discomfort [Unknown]
  - Blister [Recovered/Resolved]
  - Product use issue [Unknown]
  - Bursitis [Unknown]
  - Lower respiratory tract congestion [Unknown]
  - Stress [Unknown]
  - Sputum discoloured [Unknown]
  - Pulmonary mass [Unknown]
  - Pulmonary congestion [Unknown]
  - Injection site discomfort [Unknown]
  - Sinusitis [Recovering/Resolving]
  - Productive cough [Recovered/Resolved]
  - Fall [Unknown]
  - Injection site urticaria [Unknown]
  - Musculoskeletal pain [Recovered/Resolved]
  - Hypoaesthesia eye [Unknown]
  - Nasopharyngitis [Recovering/Resolving]

NARRATIVE: CASE EVENT DATE: 20111007
